FAERS Safety Report 10228738 (Version 4)
Quarter: 2016Q1

REPORT INFORMATION
  Report Type: Spontaneous
  Country: US (occurrence: US)
  Receive Date: 20140610
  Receipt Date: 20160324
  Transmission Date: 20160525
  Serious: Yes (Hospitalization, Disabling)
  Sender: FDA-Public Use
  Company Number: US-009507513-1406USA004364

PATIENT
  Sex: Male
  Weight: 77.98 kg

DRUGS (3)
  1. FINASTERIDE. [Suspect]
     Active Substance: FINASTERIDE
     Indication: ALOPECIA
     Dosage: 1 MG, QD
     Route: 048
  2. PROPECIA [Suspect]
     Active Substance: FINASTERIDE
     Indication: ALOPECIA
     Dosage: 1 MG, QD
     Route: 048
     Dates: start: 1998, end: 20111005
  3. PROPECIA [Suspect]
     Active Substance: FINASTERIDE
     Dosage: 1 MG, UNK
     Route: 048
     Dates: start: 201208, end: 201211

REACTIONS (20)
  - Cognitive disorder [Not Recovered/Not Resolved]
  - Polyuria [Unknown]
  - Malaise [Unknown]
  - Melanocytic naevus [Unknown]
  - Depression [Not Recovered/Not Resolved]
  - Concussion [Unknown]
  - Neck pain [Unknown]
  - Tonsillar hypertrophy [Unknown]
  - Hypoaesthesia [Unknown]
  - Anxiety [Not Recovered/Not Resolved]
  - Back pain [Unknown]
  - Erectile dysfunction [Not Recovered/Not Resolved]
  - Fatigue [Unknown]
  - Upper respiratory tract infection [Unknown]
  - Libido decreased [Unknown]
  - Tonsillectomy [Unknown]
  - Wound [Unknown]
  - Impaired fasting glucose [Unknown]
  - Sexual dysfunction [Not Recovered/Not Resolved]
  - Craniocerebral injury [Unknown]

NARRATIVE: CASE EVENT DATE: 20030910
